FAERS Safety Report 23736134 (Version 3)
Quarter: 2024Q2

REPORT INFORMATION
  Report Type: Spontaneous
  Country: CA (occurrence: CA)
  Receive Date: 20240412
  Receipt Date: 20240606
  Transmission Date: 20240716
  Serious: Yes (Other)
  Sender: FDA-Public Use
  Company Number: CA-PFIZER INC-202400082948

PATIENT
  Age: 49 Year
  Sex: Male

DRUGS (4)
  1. ABRILADA [Suspect]
     Active Substance: ADALIMUMAB-AFZB
     Indication: Colitis ulcerative
     Dosage: 160 MG AT WEEK 0, 80 MG AT WEEK 2 THEN 40MG EVERY 2 WEEKS BEGINNING AT WEEK 4
     Route: 058
     Dates: start: 20230216
  2. MESALAMINE [Concomitant]
     Active Substance: MESALAMINE
     Indication: Gastrointestinal disorder
     Dosage: 1 DF
  3. PANTOPRAZOLE [Concomitant]
     Active Substance: PANTOPRAZOLE
     Dosage: 1 DF
  4. CHOLECALCIFEROL [Concomitant]
     Active Substance: CHOLECALCIFEROL
     Dosage: 1 DF

REACTIONS (9)
  - Pneumonia [Not Recovered/Not Resolved]
  - Rib fracture [Not Recovered/Not Resolved]
  - Bronchitis [Not Recovered/Not Resolved]
  - Disease recurrence [Not Recovered/Not Resolved]
  - Conjunctivitis [Unknown]
  - Sinusitis [Unknown]
  - Cough [Not Recovered/Not Resolved]
  - Nasal congestion [Not Recovered/Not Resolved]
  - Fatigue [Not Recovered/Not Resolved]

NARRATIVE: CASE EVENT DATE: 20231201
